FAERS Safety Report 6611313-7 (Version None)
Quarter: 2010Q1

REPORT INFORMATION
  Report Type: 
  Country: None (occurrence: None)
  Receive Date: 20100301
  Receipt Date: 20100301
  Transmission Date: 20100710
  Serious: Yes (Other)
  Sender: FDA-Public Use
  Company Number: None

PATIENT
  Age: 42 Year
  Sex: Female
  Weight: 54.4316 kg

DRUGS (1)
  1. CEFUROXIME [Suspect]
     Indication: SINUSITIS
     Dosage: 500MG BID PO
     Route: 048
     Dates: start: 20100219, end: 20100226

REACTIONS (3)
  - ABASIA [None]
  - FEELING HOT [None]
  - TENDON PAIN [None]
